FAERS Safety Report 13409575 (Version 2)
Quarter: 2017Q4

REPORT INFORMATION
  Report Type: Spontaneous
  Country: US (occurrence: US)
  Receive Date: 20170406
  Receipt Date: 20171123
  Transmission Date: 20180320
  Serious: No
  Sender: FDA-Public Use
  Company Number: US-JNJFOC-20160412106

PATIENT
  Age: 14 Year
  Sex: Male

DRUGS (7)
  1. RISPERIDONE. [Suspect]
     Active Substance: RISPERIDONE
     Indication: PRODUCT USED FOR UNKNOWN INDICATION
     Route: 065
     Dates: start: 20090209, end: 20090309
  2. RISPERDAL [Suspect]
     Active Substance: RISPERIDONE
     Indication: AUTISM SPECTRUM DISORDER
     Dosage: 0.25 MG AND 0.5 MG
     Route: 048
     Dates: start: 20070219, end: 20081023
  3. RISPERIDONE. [Suspect]
     Active Substance: RISPERIDONE
     Indication: SEPARATION ANXIETY DISORDER
     Route: 048
     Dates: start: 20081124, end: 20090420
  4. RISPERIDONE. [Suspect]
     Active Substance: RISPERIDONE
     Indication: AFFECTIVE DISORDER
     Route: 048
     Dates: start: 20081124, end: 20090420
  5. RISPERDAL [Suspect]
     Active Substance: RISPERIDONE
     Indication: AFFECTIVE DISORDER
     Dosage: 0.25 MG AND 0.5 MG
     Route: 048
     Dates: start: 20070219, end: 20081023
  6. RISPERIDONE. [Suspect]
     Active Substance: RISPERIDONE
     Indication: AUTISM SPECTRUM DISORDER
     Route: 048
     Dates: start: 20081124, end: 20090420
  7. RISPERDAL [Suspect]
     Active Substance: RISPERIDONE
     Indication: SEPARATION ANXIETY DISORDER
     Dosage: 0.25 MG AND 0.5 MG
     Route: 048
     Dates: start: 20070219, end: 20081023

REACTIONS (3)
  - Gynaecomastia [Unknown]
  - Weight increased [Unknown]
  - Emotional disorder [Unknown]

NARRATIVE: CASE EVENT DATE: 20111001
